FAERS Safety Report 6685026-X (Version None)
Quarter: 2010Q2

REPORT INFORMATION
  Report Type: 
  Country: None (occurrence: None)
  Receive Date: 20100416
  Receipt Date: 20100414
  Transmission Date: 20101027
  Serious: Yes (Hospitalization)
  Sender: FDA-Public Use
  Company Number: FR-WYE-G05957010

PATIENT
  Sex: Male
  Weight: 23 kg

DRUGS (3)
  1. ADVIL LIQUI-GELS [Suspect]
     Indication: TONSILLITIS
     Dosage: UNKNOWN
     Route: 048
     Dates: start: 20091012, end: 20091019
  2. DOLIPRANE [Concomitant]
     Indication: PHARYNGITIS
     Dosage: UNKNOWN
     Route: 048
     Dates: start: 20091010, end: 20091001
  3. CLAMOXYL [Concomitant]
     Indication: PHARYNGITIS
     Dosage: UNKNOWN
     Route: 048
     Dates: start: 20091012, end: 20091019

REACTIONS (4)
  - CONDITION AGGRAVATED [None]
  - DIARRHOEA [None]
  - PNEUMOCOCCAL INFECTION [None]
  - WEIGHT DECREASED [None]
